FAERS Safety Report 18935579 (Version 1)
Quarter: 2021Q1

REPORT INFORMATION
  Report Type: Spontaneous
  Country: US (occurrence: US)
  Receive Date: 20210224
  Receipt Date: 20210224
  Transmission Date: 20210420
  Serious: No
  Sender: FDA-Public Use
  Company Number: US-TERSERA THERAPEUTICS LLC-2020TRS001343

PATIENT

DRUGS (6)
  1. PRIALT [Suspect]
     Active Substance: ZICONOTIDE ACETATE
     Indication: PAIN
  2. BACLOFEN. [Suspect]
     Active Substance: BACLOFEN
     Indication: BACK PAIN
     Dosage: 42.689 MCG, QD (CONCENTRATION:MCG/ML)
     Route: 037
  3. FENTANYL. [Suspect]
     Active Substance: FENTANYL
     Indication: BACK PAIN
     Dosage: 284.59 MCG, QD (CONCENTRATION: UNK,MCG/ML)
     Route: 037
  4. MORPHINE [Suspect]
     Active Substance: MORPHINE
     Indication: PAIN
     Dosage: 0.5492 MG,QD (CONCENTRATION:2.5MG/ML)
     Route: 037
  5. MORPHINE [Suspect]
     Active Substance: MORPHINE
     Indication: BACK PAIN
     Dosage: 5.692 MG, QD (CONCENTRATION:UNK,MG/ML)
     Route: 037
     Dates: start: 20200702
  6. PRIALT [Suspect]
     Active Substance: ZICONOTIDE ACETATE
     Indication: BACK PAIN
     Dosage: 2.2767 MCG, QD (CONCENTRATION: UNK, MCG/ML), 4 UNITS/ML
     Route: 037

REACTIONS (3)
  - Withdrawal syndrome [Unknown]
  - Off label use [Unknown]
  - Product dose omission issue [Unknown]

NARRATIVE: CASE EVENT DATE: 202005
